FAERS Safety Report 6125510-0 (Version None)
Quarter: 2009Q1

REPORT INFORMATION
  Report Type: 
  Country: None (occurrence: None)
  Receive Date: 20090320
  Receipt Date: 20090216
  Transmission Date: 20090719
  Serious: No
  Sender: FDA-Public Use
  Company Number: US-BAYER-200839616NA

PATIENT
  Age: 23 Year
  Sex: Female

DRUGS (1)
  1. MIRENA [Suspect]
     Indication: CONTRACEPTION
     Route: 015
     Dates: start: 20080801

REACTIONS (6)
  - ABDOMINAL PAIN UPPER [None]
  - AMENORRHOEA [None]
  - COITAL BLEEDING [None]
  - GENITAL HAEMORRHAGE [None]
  - IUCD COMPLICATION [None]
  - VAGINAL HAEMORRHAGE [None]
